FAERS Safety Report 5601620-9 (Version None)
Quarter: 2008Q1

REPORT INFORMATION
  Report Type: 
  Country: None (occurrence: None)
  Receive Date: 20080124
  Receipt Date: 20070119
  Transmission Date: 20080703
  Serious: No
  Sender: FDA-Public Use
  Company Number: US-BRISTOL-MYERS SQUIBB COMPANY-13649959

PATIENT
  Age: 32 Year
  Sex: Female

DRUGS (2)
  1. AZACTAM [Suspect]
     Indication: GRAM STAIN NEGATIVE
     Route: 040
  2. BENADRYL [Concomitant]
     Route: 042

REACTIONS (3)
  - NAUSEA [None]
  - SWELLING FACE [None]
  - THROAT TIGHTNESS [None]
